FAERS Safety Report 23893090 (Version 1)
Quarter: 2024Q2

REPORT INFORMATION
  Report Type: Spontaneous
  Country: US (occurrence: None)
  Receive Date: 20240524
  Receipt Date: 20240524
  Transmission Date: 20240716
  Serious: No
  Sender: FDA-Public Use
  Company Number: US-ROCHE-3385903

PATIENT
  Age: 79 Year
  Sex: Female
  Weight: 50.848 kg

DRUGS (13)
  1. ACTEMRA [Suspect]
     Active Substance: TOCILIZUMAB
     Indication: Giant cell arteritis
     Dosage: STRENGTH: 162MG/0.9ML, PEN
     Route: 058
     Dates: start: 20230701
  2. ACTEMRA [Suspect]
     Active Substance: TOCILIZUMAB
  3. SOLU-MEDROL [Concomitant]
     Active Substance: METHYLPREDNISOLONE SODIUM SUCCINATE
     Indication: Inflammation
     Route: 042
     Dates: start: 20230518, end: 20230520
  4. PREDNISONE [Concomitant]
     Active Substance: PREDNISONE
     Dosage: TAPERING OFF
     Route: 048
  5. PREDNISONE [Concomitant]
     Active Substance: PREDNISONE
     Dosage: STARTED SUNDAY 21-MAY
     Route: 048
  6. GABAPENTIN [Concomitant]
     Active Substance: GABAPENTIN
     Indication: Pain
     Dosage: STARTED BEFORE ACTEMRA AND MRI [LAB #2]. ENDED 2-3 WEEKS BEFORE?ACTEMRA PER REPORTER 1
  7. TYLENOL [Concomitant]
     Active Substance: ACETAMINOPHEN
     Indication: Pain
  8. DORZOLAMIDE [Concomitant]
     Active Substance: DORZOLAMIDE
     Indication: Glaucoma
     Dosage: STARTED BEFORE ACTEMRA. USED TWICE A DAY IN BOTH EYES
  9. VYZULTA [Concomitant]
     Active Substance: LATANOPROSTENE BUNOD
     Indication: Glaucoma
     Dosage: STARTED BEFORE ACTEMRA. USED AT NIGHT AT BEDTIME IN BOTH EYES
  10. SYSTANE (HYPROMELLOSE 2910 (4000 MPA.S)) [Concomitant]
     Active Substance: HYPROMELLOSE 2910 (4000 MPA.S)
     Indication: Dry eye
     Dosage: STARTED BEFORE ACTEMRA. USED DAILY IN BOTH EYES
  11. FOSAMAX [Concomitant]
     Active Substance: ALENDRONATE SODIUM
     Route: 048
     Dates: start: 20230616
  12. FOSAMAX [Concomitant]
     Active Substance: ALENDRONATE SODIUM
     Dosage: USED FOR ABOUT 5 YEARS
     Route: 048
     Dates: end: 201912
  13. SIMVASTATIN [Concomitant]
     Active Substance: SIMVASTATIN
     Indication: Blood cholesterol
     Dosage: STARTED BEFORE ACTEMRA

REACTIONS (5)
  - Product administration error [Unknown]
  - Wrong technique in product usage process [Unknown]
  - Product storage error [Unknown]
  - Device issue [Unknown]
  - No adverse event [Unknown]
